FAERS Safety Report 16443894 (Version 5)
Quarter: 2025Q1

REPORT INFORMATION
  Report Type: Spontaneous
  Country: CA (occurrence: CA)
  Receive Date: 20190618
  Receipt Date: 20250204
  Transmission Date: 20250409
  Serious: Yes (Hospitalization, Other)
  Sender: AUROBINDO
  Company Number: CA-AUROBINDO-AUR-APL-2019-033234

PATIENT
  Age: 35 Year
  Sex: Male

DRUGS (27)
  1. ARIPIPRAZOLE [Interacting]
     Active Substance: ARIPIPRAZOLE
     Indication: Psychotic disorder
     Dosage: 10 MILLIGRAM, ONCE A DAY
     Route: 048
  2. ARIPIPRAZOLE [Interacting]
     Active Substance: ARIPIPRAZOLE
     Indication: Bipolar disorder
  3. ARIPIPRAZOLE [Interacting]
     Active Substance: ARIPIPRAZOLE
     Indication: Psychotic disorder
     Route: 030
  4. ARIPIPRAZOLE [Interacting]
     Active Substance: ARIPIPRAZOLE
     Indication: Bipolar disorder
  5. QUETIAPINE [Interacting]
     Active Substance: QUETIAPINE
     Indication: Poor quality sleep
     Route: 048
  6. QUETIAPINE [Interacting]
     Active Substance: QUETIAPINE
     Indication: Bipolar disorder
  7. BENZTROPINE [Interacting]
     Active Substance: BENZTROPINE
     Indication: Bipolar disorder
     Route: 065
  8. BENZTROPINE [Interacting]
     Active Substance: BENZTROPINE
     Indication: Dystonia
  9. BENZTROPINE [Interacting]
     Active Substance: BENZTROPINE
     Indication: Dystonic tremor
  10. LITHIUM [Interacting]
     Active Substance: LITHIUM
     Indication: Affective disorder
     Dosage: 900 MILLIGRAM, ONCE A DAY
     Route: 048
  11. LITHIUM [Interacting]
     Active Substance: LITHIUM
     Indication: Bipolar disorder
  12. LIBRIUM [Suspect]
     Active Substance: CHLORDIAZEPOXIDE HYDROCHLORIDE
     Indication: Poor quality sleep
     Route: 065
  13. LEVOMEPROMAZINE [Interacting]
     Active Substance: LEVOMEPROMAZINE
     Indication: Poor quality sleep
     Route: 065
  14. LEVOMEPROMAZINE [Interacting]
     Active Substance: LEVOMEPROMAZINE
     Indication: Bipolar disorder
  15. LEVOMEPROMAZINE [Interacting]
     Active Substance: LEVOMEPROMAZINE
     Indication: Poor quality sleep
     Route: 065
  16. CLONAZEPAM [Interacting]
     Active Substance: CLONAZEPAM
     Indication: Bipolar disorder
     Route: 065
  17. CLONAZEPAM [Interacting]
     Active Substance: CLONAZEPAM
     Indication: Dystonia
  18. CLONAZEPAM [Interacting]
     Active Substance: CLONAZEPAM
     Indication: Poor quality sleep
  19. OXAZEPAM [Suspect]
     Active Substance: OXAZEPAM
     Indication: Poor quality sleep
     Route: 065
  20. OXAZEPAM [Suspect]
     Active Substance: OXAZEPAM
     Indication: Bipolar disorder
  21. TEMAZEPAM [Interacting]
     Active Substance: TEMAZEPAM
     Indication: Bipolar disorder
     Route: 065
  22. TEMAZEPAM [Interacting]
     Active Substance: TEMAZEPAM
     Indication: Poor quality sleep
  23. ZOPICLONE [Interacting]
     Active Substance: ZOPICLONE
     Indication: Bipolar disorder
     Route: 064
  24. ZOPICLONE [Interacting]
     Active Substance: ZOPICLONE
     Indication: Poor quality sleep
  25. LORAZEPAM [Concomitant]
     Active Substance: LORAZEPAM
     Indication: Bipolar disorder
     Route: 065
  26. VORTIOXETINE [Concomitant]
     Active Substance: VORTIOXETINE
     Indication: Antidepressant therapy
     Dosage: 10 MILLIGRAM, ONCE A DAY
     Route: 048
  27. SERTRALINE [Concomitant]
     Active Substance: SERTRALINE HYDROCHLORIDE
     Indication: Depressed mood
     Route: 065

REACTIONS (10)
  - Dystonic tremor [Recovering/Resolving]
  - Dystonia [Recovering/Resolving]
  - Drug interaction [Recovering/Resolving]
  - Drug ineffective [Recovering/Resolving]
  - Restlessness [Unknown]
  - Musculoskeletal stiffness [Recovering/Resolving]
  - Muscle contracture [Recovering/Resolving]
  - Tremor [Recovering/Resolving]
  - Therapeutic product effect incomplete [Unknown]
  - Off label use [Unknown]
